FAERS Safety Report 19756789 (Version 1)
Quarter: 2021Q3

REPORT INFORMATION
  Report Type: Report from Study
  Country: CL (occurrence: CL)
  Receive Date: 20210827
  Receipt Date: 20210827
  Transmission Date: 20211014
  Serious: Yes (Death)
  Sender: FDA-Public Use
  Company Number: CL-JNJFOC-20210851144

PATIENT
  Age: 84 Year
  Sex: Female

DRUGS (1)
  1. VENTAVIS [Suspect]
     Active Substance: ILOPROST
     Indication: PULMONARY HYPERTENSION
     Dosage: 154
     Dates: start: 20191126, end: 20210716

REACTIONS (2)
  - Pulmonary hypertension [Fatal]
  - Intestinal haemorrhage [Fatal]
